FAERS Safety Report 17724175 (Version 10)
Quarter: 2022Q1

REPORT INFORMATION
  Report Type: Report from Study
  Country: JP (occurrence: JP)
  Receive Date: 20200429
  Receipt Date: 20220217
  Transmission Date: 20220423
  Serious: Yes (Hospitalization, Other)
  Sender: FDA-Public Use
  Company Number: JP-009507513-2004JPN005529

PATIENT
  Age: 69 Year
  Sex: Male
  Weight: 49.9 kg

DRUGS (22)
  1. ABRAXANE [Suspect]
     Active Substance: PACLITAXEL
     Indication: Non-small cell lung cancer stage IV
     Dosage: 100 MILLIGRAM/SQ. METER (DOSE ADMINISTERED 153.5 MG)
     Route: 042
     Dates: start: 20200214, end: 20200326
  2. ABRAXANE [Suspect]
     Active Substance: PACLITAXEL
     Dosage: 100 MILLIGRAM/SQ. METER (DOSE ADMINISTERED 153.5 MG)
     Route: 042
     Dates: start: 20200402, end: 20200402
  3. PEMBROLIZUMAB [Suspect]
     Active Substance: PEMBROLIZUMAB
     Indication: Non-small cell lung cancer stage IV
     Dosage: 200 MILLIGRAM
     Route: 042
     Dates: start: 20200214, end: 20200305
  4. PEMBROLIZUMAB [Suspect]
     Active Substance: PEMBROLIZUMAB
     Dosage: 200 MILLIGRAM
     Route: 042
     Dates: start: 20200326, end: 20200326
  5. CARBOPLATIN [Suspect]
     Active Substance: CARBOPLATIN
     Indication: Non-small cell lung cancer stage IV
     Dosage: AUC 6 MG/ML/MIN
     Route: 042
     Dates: start: 20200214, end: 20200305
  6. CARBOPLATIN [Suspect]
     Active Substance: CARBOPLATIN
     Dosage: 6 MG/ML/MIN
     Route: 042
     Dates: start: 20200326, end: 20200326
  7. LEVETIRACETAM [Concomitant]
     Active Substance: LEVETIRACETAM
     Indication: Prophylaxis
     Dosage: 1000 MILLIGRAM
     Route: 048
     Dates: start: 20200104
  8. RESTAMINE [Concomitant]
     Indication: Pruritus
     Dosage: 1 APPLICATION
     Route: 003
     Dates: start: 20200212
  9. MAGNESIUM OXIDE [Concomitant]
     Active Substance: MAGNESIUM OXIDE
     Indication: Constipation
     Dosage: 330 MILLIGRAM
     Route: 048
     Dates: start: 20200305
  10. SENNA [Concomitant]
     Active Substance: SENNA LEAF\SENNOSIDES\SENNOSIDES A AND B
     Indication: Constipation
     Dosage: 80 MILLIGRAM
     Route: 048
     Dates: start: 20200305
  11. Novamin [Concomitant]
     Indication: Nausea
     Dosage: 5 MILLIGRAM
     Route: 048
     Dates: start: 20200311
  12. AMITIZA [Concomitant]
     Active Substance: LUBIPROSTONE
     Indication: Constipation
     Dosage: 24 MICROGRAM
     Route: 048
     Dates: start: 20200311
  13. NAPROXEN SODIUM [Concomitant]
     Active Substance: NAPROXEN SODIUM
     Indication: Product used for unknown indication
     Dosage: 100 MILLIGRAM
     Route: 048
     Dates: start: 20200311
  14. VONOPRAZAN FUMARATE [Concomitant]
     Active Substance: VONOPRAZAN FUMARATE
     Indication: Gastritis prophylaxis
     Dosage: 10 MILLIGRAM
     Route: 048
     Dates: start: 20200311
  15. GLYCOSAMINOGLYCANS [Concomitant]
     Active Substance: GLYCOSAMINOGLYCANS
     Indication: Dry skin
     Dosage: 1 APPLICATION
     Route: 003
     Dates: start: 20200311
  16. EMEND [Concomitant]
     Active Substance: APREPITANT
     Indication: Premedication
     Dosage: 125 MILLIGRAM
     Route: 048
     Dates: start: 20200326, end: 20200326
  17. EMEND [Concomitant]
     Active Substance: APREPITANT
     Indication: Prophylaxis
     Dosage: 80 MILLIGRAM
     Route: 048
     Dates: start: 20200327, end: 20200328
  18. ALOXI [Concomitant]
     Active Substance: PALONOSETRON HYDROCHLORIDE
     Indication: Premedication
     Dosage: .75 MILLIGRAM
     Route: 042
     Dates: start: 20200326, end: 20200326
  19. DEXAMETHASONE SODIUM PHOSPHATE [Concomitant]
     Active Substance: DEXAMETHASONE SODIUM PHOSPHATE
     Indication: Premedication
     Dosage: 6.6 MILLIGRAM
     Route: 042
     Dates: start: 20200326, end: 20200326
  20. DEXAMETHASONE SODIUM PHOSPHATE [Concomitant]
     Active Substance: DEXAMETHASONE SODIUM PHOSPHATE
     Indication: Premedication
     Route: 065
     Dates: start: 20200402, end: 20200402
  21. DECADRON [Concomitant]
     Active Substance: DEXAMETHASONE
     Indication: Prophylaxis
     Dosage: 8 MILLIGRAM
     Route: 048
     Dates: start: 20200327, end: 20200329
  22. ZINC [Concomitant]
     Active Substance: ZINC
     Indication: Dysgeusia
     Dosage: 100 MILLIGRAM
     Route: 048
     Dates: start: 20200402

REACTIONS (2)
  - Renal impairment [Recovered/Resolved]
  - Interstitial lung disease [Recovered/Resolved]

NARRATIVE: CASE EVENT DATE: 20200409
